FAERS Safety Report 6554926-3 (Version None)
Quarter: 2010Q1

REPORT INFORMATION
  Report Type: 
  Country: None (occurrence: None)
  Receive Date: 20100126
  Receipt Date: 20100119
  Transmission Date: 20100710
  Serious: Yes (Other)
  Sender: FDA-Public Use
  Company Number: 2009US004153

PATIENT
  Sex: Female
  Weight: 63 kg

DRUGS (5)
  1. AMBISOME [Suspect]
     Indication: ANTIFUNGAL PROPHYLAXIS
     Dosage: 200 MG, 3XWEEKLY, IV NOS
     Route: 042
     Dates: start: 20090526, end: 20091101
  2. TEICOPLANIN (TEICOPLANIN) [Concomitant]
  3. MEROPENEM [Concomitant]
  4. PENICILLIN NOS (PENICILLIN NOS) [Concomitant]
  5. VENLA (VENLAFAXINE HYDROCHLORIDE) [Concomitant]

REACTIONS (1)
  - LONG QT SYNDROME [None]
